FAERS Safety Report 5055538-3 (Version None)
Quarter: 2006Q3

REPORT INFORMATION
  Report Type: 
  Country: None (occurrence: None)
  Receive Date: 20060717
  Receipt Date: 20060717
  Transmission Date: 20061208
  Serious: Yes (Disabling)
  Sender: FDA-Public Use
  Company Number: None

PATIENT
  Sex: Female
  Weight: 65.7716 kg

DRUGS (1)
  1. LIPATOR   200 MG [Suspect]
     Indication: BLOOD CHOLESTEROL INCREASED
     Dosage: 200 MG   ONCE A DAY   PO
     Route: 048
     Dates: start: 20000601, end: 20060509

REACTIONS (3)
  - ASTHENIA [None]
  - BLOOD CREATINE PHOSPHOKINASE INCREASED [None]
  - MYALGIA [None]
